FAERS Safety Report 5795608-5 (Version None)
Quarter: 2008Q2

REPORT INFORMATION
  Report Type: 
  Country: None (occurrence: None)
  Receive Date: 20080630
  Receipt Date: 20080620
  Transmission Date: 20081010
  Serious: Yes (Hospitalization, Other)
  Sender: FDA-Public Use
  Company Number: US-ABBOTT-08P-163-0459017-00

PATIENT
  Sex: Female
  Weight: 64.922 kg

DRUGS (4)
  1. HUMIRA [Suspect]
     Indication: CROHN'S DISEASE
     Dosage: 160 MG STARTER DOSE, THEN 80MG X 1, THEN 40MG EVERY OTHER WEEK
     Route: 058
     Dates: start: 20080101
  2. HUMIRA [Suspect]
  3. HUMIRA [Suspect]
     Dates: start: 20080101
  4. VITAMINS [Concomitant]
     Indication: MEDICAL DIET
     Route: 048
     Dates: start: 20080501

REACTIONS (20)
  - ABDOMINAL PAIN [None]
  - ARTHRALGIA [None]
  - DIARRHOEA HAEMORRHAGIC [None]
  - DRY SKIN [None]
  - FALL [None]
  - HAEMORRHAGE SUBCUTANEOUS [None]
  - INFECTION [None]
  - INJURY [None]
  - INTESTINAL RESECTION [None]
  - JOINT INJURY [None]
  - JOINT SPRAIN [None]
  - MALABSORPTION [None]
  - MALNUTRITION [None]
  - MUSCLE ATROPHY [None]
  - PRURITUS [None]
  - PYREXIA [None]
  - SKIN LACERATION [None]
  - SPINAL FRACTURE [None]
  - VIRAL INFECTION [None]
  - WEIGHT DECREASED [None]
